FAERS Safety Report 7978846-2 (Version None)
Quarter: 2011Q4

REPORT INFORMATION
  Report Type: 
  Country: None (occurrence: None)
  Receive Date: 20111214
  Receipt Date: 20111206
  Transmission Date: 20120403
  Serious: Yes (Other)
  Sender: FDA-Public Use
  Company Number: US-UCBSA-025027

PATIENT
  Age: 38 Year
  Sex: Female
  Weight: 99.79 kg

DRUGS (10)
  1. CIMZIA [Suspect]
     Indication: CROHN'S DISEASE
     Route: 058
     Dates: start: 20101006, end: 20101229
  2. ATIVAN [Concomitant]
     Indication: INSOMNIA
     Route: 048
     Dates: start: 20110126
  3. IMMUNOSUPPRESSANTS [Concomitant]
     Indication: CROHN'S DISEASE
  4. CORTICOSTEROIDS [Concomitant]
     Indication: CROHN'S DISEASE
  5. SYNTHROID [Concomitant]
     Indication: HYPOTHYROIDISM
     Route: 048
  6. OMEPRAZOLE [Concomitant]
     Route: 048
  7. IBUPROFEN [Concomitant]
     Indication: CROHN'S DISEASE
  8. DYAZIDE [Concomitant]
     Dosage: 37.5-25 MG
     Route: 048
  9. ACETAMINOPHEN [Concomitant]
     Indication: CROHN'S DISEASE
  10. BUDESONIDE [Concomitant]
     Indication: CROHN'S DISEASE
     Dates: start: 20050501

REACTIONS (2)
  - RASH PRURITIC [None]
  - HYPERSENSITIVITY [None]
